FAERS Safety Report 4851751-6 (Version None)
Quarter: 2005Q4

REPORT INFORMATION
  Report Type: 
  Country: None (occurrence: None)
  Receive Date: 20051209
  Receipt Date: 20051125
  Transmission Date: 20060501
  Serious: Yes (Hospitalization)
  Sender: FDA-Public Use
  Company Number: S05-UKI-05537-01

PATIENT
  Age: 41 Year
  Sex: Female

DRUGS (5)
  1. ESCITALOPRAM OXALATE [Suspect]
     Indication: ANXIETY
     Dosage: 20 MG QD; PO
     Route: 048
     Dates: start: 20050516, end: 20051104
  2. TRAMADOL HCL [Concomitant]
  3. MONTELUKAST [Concomitant]
  4. TERBUTALINE [Concomitant]
  5. SYMBICORT [Concomitant]

REACTIONS (2)
  - CONVULSION [None]
  - SOMNOLENCE [None]
